FAERS Safety Report 25324099 (Version 2)
Quarter: 2025Q2

REPORT INFORMATION
  Report Type: Spontaneous
  Country: CA (occurrence: CA)
  Receive Date: 20250516
  Receipt Date: 20250604
  Transmission Date: 20250716
  Serious: Yes (Hospitalization)
  Sender: NOVARTIS
  Company Number: CA-002147023-NVSC2025CA078864

PATIENT
  Age: 84 Year
  Sex: Male

DRUGS (2)
  1. BEOVU [Suspect]
     Active Substance: BROLUCIZUMAB-DBLL
     Indication: Neovascular age-related macular degeneration
     Route: 065
  2. BEOVU [Suspect]
     Active Substance: BROLUCIZUMAB-DBLL
     Dosage: UNK, Q2MO
     Route: 031
     Dates: start: 20210126

REACTIONS (2)
  - Fall [Recovering/Resolving]
  - Traumatic lung injury [Unknown]

NARRATIVE: CASE EVENT DATE: 20250311
